FAERS Safety Report 5764895-1 (Version None)
Quarter: 2008Q2

REPORT INFORMATION
  Report Type: 
  Country: None (occurrence: None)
  Receive Date: 20080611
  Receipt Date: 20080604
  Transmission Date: 20081010
  Serious: Yes (Other)
  Sender: FDA-Public Use
  Company Number: JP-AVENTIS-200811602JP

PATIENT

DRUGS (3)
  1. ALLEGRA [Suspect]
     Route: 048
  2. DEPAS [Concomitant]
  3. LUDIOMIL                           /00331902/ [Concomitant]

REACTIONS (1)
  - GASTROINTESTINAL HAEMORRHAGE [None]
